FAERS Safety Report 6234566-6 (Version None)
Quarter: 2009Q2

REPORT INFORMATION
  Report Type: 
  Country: None (occurrence: None)
  Receive Date: 20090616
  Receipt Date: 20090616
  Transmission Date: 20091009
  Serious: Yes (Hospitalization)
  Sender: FDA-Public Use
  Company Number: None

PATIENT
  Sex: Male
  Weight: 99.1 kg

DRUGS (4)
  1. DOCETAXEL [Suspect]
     Indication: PROSTATE CANCER
     Dosage: 75MG/M2, Q3W, IV
     Route: 042
     Dates: start: 20090512
  2. PEDNISONE [Concomitant]
  3. DEXAMETHASONE [Concomitant]
  4. LUPRON [Concomitant]

REACTIONS (7)
  - ANAEMIA [None]
  - BRONCHITIS [None]
  - DEHYDRATION [None]
  - FEBRILE NEUTROPENIA [None]
  - PNEUMONIA [None]
  - TACHYCARDIA [None]
  - VOMITING [None]
